FAERS Safety Report 7120800-7 (Version None)
Quarter: 2010Q4

REPORT INFORMATION
  Report Type: 
  Country: None (occurrence: None)
  Receive Date: 20101124
  Receipt Date: 20101115
  Transmission Date: 20110411
  Serious: Yes (Other)
  Sender: FDA-Public Use
  Company Number: US-JNJFOC-20101105072

PATIENT
  Sex: Female
  Weight: 126.55 kg

DRUGS (10)
  1. REMICADE [Suspect]
     Indication: ANKYLOSING SPONDYLITIS
     Route: 042
  2. REMICADE [Suspect]
     Route: 042
  3. DIOVAN [Concomitant]
     Indication: BLOOD PRESSURE
     Route: 048
  4. METHOTREXATE [Concomitant]
     Indication: ANKYLOSING SPONDYLITIS
     Route: 048
  5. VITAMIN B-12 [Concomitant]
     Indication: VITAMIN B12 DEFICIENCY
     Route: 048
  6. FERROUS SULFATE [Concomitant]
     Indication: BLOOD IRON DECREASED
     Route: 048
  7. VITAMIN D2 [Concomitant]
     Indication: VITAMIN D DEFICIENCY
     Route: 048
  8. PROVIGIL [Concomitant]
     Indication: NARCOLEPSY
     Route: 048
  9. PROTONIX [Concomitant]
     Indication: GASTRIC DISORDER
     Route: 048
  10. FLOVENT [Concomitant]
     Indication: UNEVALUABLE EVENT
     Route: 055

REACTIONS (6)
  - DYSPNOEA EXERTIONAL [None]
  - GROIN ABSCESS [None]
  - LYMPH NODE PAIN [None]
  - NASOPHARYNGITIS [None]
  - OEDEMA PERIPHERAL [None]
  - WEIGHT INCREASED [None]
